FAERS Safety Report 8459784-8 (Version None)
Quarter: 2012Q2

REPORT INFORMATION
  Report Type: 
  Country: None (occurrence: None)
  Receive Date: 20120622
  Receipt Date: 20120619
  Transmission Date: 20120825
  Serious: Yes (Hospitalization)
  Sender: FDA-Public Use
  Company Number: FR-MERCK-1204USA04245

PATIENT
  Age: 77 Year
  Sex: Female

DRUGS (25)
  1. XELODA [Suspect]
     Route: 048
     Dates: start: 20120229, end: 20120314
  2. IPERTEN [Concomitant]
     Route: 065
  3. ALLOPURINOL [Concomitant]
     Route: 065
  4. CISPLATIN [Suspect]
     Indication: BREAST CANCER
     Route: 042
     Dates: start: 20120208
  5. CISPLATIN [Suspect]
     Indication: GASTRIC CANCER
     Route: 042
     Dates: start: 20120208
  6. CISPLATIN [Suspect]
     Route: 042
     Dates: start: 20120229
  7. HERCEPTIN [Suspect]
     Indication: GASTRIC CANCER
     Route: 042
     Dates: start: 20120208, end: 20120229
  8. XENETIX [Concomitant]
     Route: 065
  9. CISPLATIN [Suspect]
     Route: 042
     Dates: start: 20120229
  10. LOVENOX [Concomitant]
     Route: 065
  11. MAGNESIUM SULFATE [Concomitant]
     Route: 065
     Dates: start: 20111115
  12. EMEND [Suspect]
     Route: 048
     Dates: start: 20120208, end: 20120302
  13. XELODA [Suspect]
     Indication: BREAST CANCER
     Route: 048
     Dates: start: 20120208, end: 20120222
  14. CORDARONE [Concomitant]
     Route: 065
     Dates: start: 20111115
  15. BISOPROLOL FUMARATE AND HYDROCHLOROTHIAZIDE [Concomitant]
     Route: 065
  16. LORAZEPAM [Concomitant]
     Route: 065
  17. EMEND [Suspect]
     Indication: PROPHYLAXIS OF NAUSEA AND VOMITING
     Route: 048
     Dates: start: 20120208, end: 20120302
  18. XELODA [Suspect]
     Indication: GASTRIC CANCER
     Route: 048
     Dates: start: 20120208, end: 20120222
  19. POTASSIUM CHLORIDE [Concomitant]
     Route: 065
  20. NEXIUM [Concomitant]
     Route: 065
  21. ACETAMINOPHEN [Concomitant]
     Route: 065
  22. TRAMADOL HCL [Concomitant]
     Dosage: IF NEEDED
     Route: 065
  23. XELODA [Suspect]
     Route: 048
     Dates: start: 20120229, end: 20120314
  24. HERCEPTIN [Suspect]
     Indication: BREAST CANCER
     Route: 042
     Dates: start: 20120208, end: 20120229
  25. ZOFRAN [Concomitant]
     Route: 065

REACTIONS (3)
  - NEUTROPENIA [None]
  - DIARRHOEA [None]
  - NEUTROPENIC COLITIS [None]
